FAERS Safety Report 18323882 (Version 1)
Quarter: 2020Q3

REPORT INFORMATION
  Report Type: Spontaneous
  Country: US (occurrence: US)
  Receive Date: 20200929
  Receipt Date: 20200929
  Transmission Date: 20201103
  Serious: Yes (Other)
  Sender: FDA-Public Use
  Company Number: US-GLAXOSMITHKLINE-US2020AMR187522

PATIENT

DRUGS (1)
  1. ACYCLOVIR. [Suspect]
     Active Substance: ACYCLOVIR
     Indication: ORAL HERPES
     Dosage: 800 MG, BID
     Dates: start: 2012

REACTIONS (11)
  - Oral mucosal blistering [Unknown]
  - Stomatitis [Unknown]
  - Tongue ulceration [Unknown]
  - Tongue disorder [Unknown]
  - Throat lesion [Unknown]
  - Oropharyngeal blistering [Unknown]
  - Oral disorder [Unknown]
  - Product dose omission issue [Unknown]
  - Tongue blistering [Unknown]
  - Oral discomfort [Unknown]
  - Pharyngeal ulceration [Unknown]
